FAERS Safety Report 12366560 (Version 1)
Quarter: 2016Q2

REPORT INFORMATION
  Report Type: Spontaneous
  Country: TW (occurrence: TW)
  Receive Date: 20160513
  Receipt Date: 20160513
  Transmission Date: 20160815
  Serious: Yes (Other)
  Sender: FDA-Public Use
  Company Number: TW-ROCHE-1754511

PATIENT
  Sex: Male

DRUGS (5)
  1. SIROLIMUS. [Concomitant]
     Active Substance: SIROLIMUS
  2. RAPAMYCIN [Concomitant]
     Active Substance: SIROLIMUS
  3. FK506 [Concomitant]
     Active Substance: TACROLIMUS
  4. CELLCEPT [Suspect]
     Active Substance: MYCOPHENOLATE MOFETIL\MYCOPHENOLATE MOFETIL HYDROCHLORIDE
     Route: 065
     Dates: start: 2016, end: 2016
  5. CELLCEPT [Suspect]
     Active Substance: MYCOPHENOLATE MOFETIL\MYCOPHENOLATE MOFETIL HYDROCHLORIDE
     Indication: PROPHYLAXIS AGAINST TRANSPLANT REJECTION
     Route: 065
     Dates: start: 201602, end: 201602

REACTIONS (1)
  - Small intestinal haemorrhage [Recovered/Resolved]

NARRATIVE: CASE EVENT DATE: 201602
